FAERS Safety Report 9245122 (Version 1)
Quarter: 2013Q2

REPORT INFORMATION
  Report Type: Spontaneous
  Country: FR (occurrence: FR)
  Receive Date: 20130422
  Receipt Date: 20130422
  Transmission Date: 20140414
  Serious: Yes (Life-Threatening, Hospitalization)
  Sender: FDA-Public Use
  Company Number: PHHY2013FR038016

PATIENT
  Age: 85 Year
  Sex: Female

DRUGS (4)
  1. ZOMETA [Suspect]
     Indication: FRACTURE
     Dosage: 4 MG, QMO
     Route: 042
     Dates: start: 201012, end: 20130328
  2. LASILIX [Interacting]
     Indication: CARDIAC FAILURE
     Dosage: UNK
     Route: 048
     Dates: end: 20130403
  3. HEMIGOXINE NATIVELLE [Concomitant]
     Indication: CARDIAC FAILURE
     Dosage: UNK UKN, UNK
     Route: 048
  4. XARELTO [Concomitant]
     Dosage: UNK

REACTIONS (3)
  - Coma [Recovered/Resolved]
  - Drug interaction [Recovered/Resolved]
  - Hypokalaemia [Recovered/Resolved]
